FAERS Safety Report 12668030 (Version 1)
Quarter: 2016Q3

REPORT INFORMATION
  Report Type: Spontaneous
  Country: FR (occurrence: FR)
  Receive Date: 20160819
  Receipt Date: 20160819
  Transmission Date: 20161109
  Serious: Yes (Hospitalization, Other)
  Sender: FDA-Public Use
  Company Number: FR-MYLANLABS-2016M1034507

PATIENT

DRUGS (12)
  1. CORTANCYL [Concomitant]
     Active Substance: PREDNISONE
     Indication: DIFFUSE VASCULITIS
     Dosage: 1 DF, QD
     Route: 048
     Dates: start: 20160531
  2. HARVONI [Concomitant]
     Active Substance: LEDIPASVIR\SOFOSBUVIR
     Indication: CHRONIC HEPATITIS C
     Dosage: 1 DF, QD
     Route: 048
     Dates: start: 20160504
  3. CALCIDOSE VITAMINE D [Concomitant]
     Active Substance: CALCIUM\CHOLECALCIFEROL
     Indication: PRODUCT USED FOR UNKNOWN INDICATION
     Dosage: ONCE DAILY
     Route: 048
  4. OLANZAPINE MYLAN 10 MG FILM-COATED TABLETS [Suspect]
     Active Substance: OLANZAPINE
     Indication: PARANOIA
     Dosage: 1 DF, QD
     Route: 048
  5. IMUREL                             /00001501/ [Concomitant]
     Active Substance: AZATHIOPRINE SODIUM
     Indication: VASCULITIS
  6. LASILIX                            /00032601/ [Concomitant]
     Active Substance: FUROSEMIDE
     Indication: ASCITES
     Dosage: 1 DF, QD
     Route: 048
     Dates: start: 20160603, end: 20160725
  7. XATRAL [Concomitant]
     Active Substance: ALFUZOSIN
     Indication: BENIGN PROSTATIC HYPERPLASIA
     Dosage: 1 DF, QD
     Route: 048
     Dates: start: 20160614, end: 20160707
  8. TAVANIC SPECIFIC [Concomitant]
     Indication: LUNG DISORDER
     Dosage: 500 MG, QD
  9. EUPANTOL [Suspect]
     Active Substance: PANTOPRAZOLE SODIUM
     Indication: OESOPHAGITIS
     Dosage: 1 DF, QD
     Route: 042
     Dates: start: 20160531, end: 20160714
  10. DUPHALAC [Concomitant]
     Active Substance: LACTULOSE
     Indication: HEPATIC ENCEPHALOPATHY
     Dosage: 3 DF, QD (10 G PER 15 ML, 3 SACHETS DAILY)
     Route: 048
  11. BUPRENORPHINE. [Concomitant]
     Active Substance: BUPRENORPHINE
     Indication: PRODUCT SUBSTITUTION
     Dosage: 6 MG, QD
     Route: 048
  12. CHOLURSO [Concomitant]
     Active Substance: URSODIOL
     Indication: PRODUCT USED FOR UNKNOWN INDICATION
     Dosage: 2 DF, BID
     Route: 048

REACTIONS (2)
  - Thrombocytopenia [Recovering/Resolving]
  - Anaemia [Unknown]

NARRATIVE: CASE EVENT DATE: 20160615
